FAERS Safety Report 6652230-6 (Version None)
Quarter: 2010Q1

REPORT INFORMATION
  Report Type: 
  Country: None (occurrence: None)
  Receive Date: 20100325
  Receipt Date: 20100312
  Transmission Date: 20100710
  Serious: Yes (Other)
  Sender: FDA-Public Use
  Company Number: NO-GENENTECH-298669

PATIENT
  Sex: Female

DRUGS (4)
  1. XOLAIR [Suspect]
     Indication: BLOOD IMMUNOGLOBULIN E INCREASED
     Dosage: 3 ML, Q2W
     Dates: start: 20090928, end: 20100215
  2. XOLAIR [Suspect]
     Indication: ASTHMA
  3. XOLAIR [Suspect]
     Indication: ECZEMA
  4. XOLAIR [Suspect]
     Indication: SEASONAL ALLERGY

REACTIONS (11)
  - ARTHRALGIA [None]
  - HEADACHE [None]
  - MIDDLE INSOMNIA [None]
  - MYALGIA [None]
  - NAUSEA [None]
  - OEDEMA [None]
  - PAIN [None]
  - PRURITUS [None]
  - RASH [None]
  - SKIN EXFOLIATION [None]
  - WEIGHT INCREASED [None]
